FAERS Safety Report 7458391-3 (Version None)
Quarter: 2011Q2

REPORT INFORMATION
  Report Type: 
  Country: None (occurrence: None)
  Receive Date: 20110504
  Receipt Date: 20110425
  Transmission Date: 20111010
  Serious: Yes (Life-Threatening, Hospitalization)
  Sender: FDA-Public Use
  Company Number: A0924271A

PATIENT
  Sex: Female
  Weight: 83.6 kg

DRUGS (3)
  1. SYMBICORT [Concomitant]
     Dosage: 2PUFF TWICE PER DAY
     Route: 055
     Dates: start: 20060209
  2. VENTOLIN [Suspect]
     Route: 055
  3. XOLAIR [Suspect]
     Dosage: 300MG SEE DOSAGE TEXT
     Route: 058
     Dates: start: 20050829

REACTIONS (5)
  - OEDEMA PERIPHERAL [None]
  - CHEST PAIN [None]
  - DYSPNOEA [None]
  - DRUG INEFFECTIVE [None]
  - MYOCARDIAL INFARCTION [None]
